FAERS Safety Report 16923199 (Version 1)
Quarter: 2019Q4

REPORT INFORMATION
  Report Type: Spontaneous
  Country: CA (occurrence: CA)
  Receive Date: 20191016
  Receipt Date: 20191016
  Transmission Date: 20200122
  Serious: Yes (Other)
  Sender: FDA-Public Use
  Company Number: CA-TEVA-2019-CA-1122222

PATIENT
  Sex: Female

DRUGS (9)
  1. MESALAZINE [Suspect]
     Active Substance: MESALAMINE
     Indication: COLITIS ULCERATIVE
     Route: 065
  2. VITAMINS [Concomitant]
     Active Substance: VITAMINS
  3. ENTYVIO [Concomitant]
     Active Substance: VEDOLIZUMAB
  4. IRON SUCROSE [Concomitant]
     Active Substance: IRON SUCROSE
  5. DALTEPARIN [Concomitant]
     Active Substance: DALTEPARIN
  6. CORTIMENT (HYDROCORTISONE ACETATE) [Suspect]
     Active Substance: HYDROCORTISONE ACETATE
     Indication: COLITIS ULCERATIVE
     Route: 065
  7. CALCIUM CARBONATE. [Concomitant]
     Active Substance: CALCIUM CARBONATE
  8. FOLIC ACID. [Concomitant]
     Active Substance: FOLIC ACID
  9. VEDOLIZUMAB [Concomitant]
     Active Substance: VEDOLIZUMAB

REACTIONS (2)
  - Anaphylactic reaction [Not Recovered/Not Resolved]
  - Drug ineffective [Not Recovered/Not Resolved]
